FAERS Safety Report 6775819-2 (Version None)
Quarter: 2010Q2

REPORT INFORMATION
  Report Type: 
  Country: None (occurrence: None)
  Receive Date: 20100615
  Receipt Date: 20100604
  Transmission Date: 20101027
  Serious: Yes (Hospitalization)
  Sender: FDA-Public Use
  Company Number: PIR#1006035

PATIENT
  Age: 68 Year
  Sex: Male

DRUGS (1)
  1. CEFTRIAXONE INJECTION [Suspect]

REACTIONS (4)
  - BLOOD ALKALINE PHOSPHATASE INCREASED [None]
  - BLOOD GLUCOSE INCREASED [None]
  - CHOLELITHIASIS [None]
  - HAEMOGLOBIN DECREASED [None]
